FAERS Safety Report 16962137 (Version 1)
Quarter: 2019Q4

REPORT INFORMATION
  Report Type: Report from Study
  Country: US (occurrence: US)
  Receive Date: 20191025
  Receipt Date: 20191025
  Transmission Date: 20200122
  Serious: Yes (Hospitalization, Other)
  Sender: FDA-Public Use
  Company Number: US-CASPER PHARMA LLC-2019CAS000534

PATIENT
  Age: 48 Year
  Sex: Male

DRUGS (1)
  1. NEOMYCIN, POLYMYXIN, BACITRACIN, HC [Suspect]
     Active Substance: BACITRACIN ZINC\HYDROCORTISONE\NEOMYCIN SULFATE\POLYMYXIN B SULFATE
     Indication: PNEUMONIA
     Dosage: 1.6 MILLIGRAM/KILOGRAM, EVERY 12 HOUR
     Route: 042

REACTIONS (1)
  - Respiratory arrest [Recovered/Resolved]
